FAERS Safety Report 15410768 (Version 2)
Quarter: 2018Q4

REPORT INFORMATION
  Report Type: Report from Study
  Country: ZA (occurrence: ZA)
  Receive Date: 20180921
  Receipt Date: 20181017
  Transmission Date: 20190204
  Serious: Yes (Death)
  Sender: FDA-Public Use
  Company Number: ZA-REGENERON PHARMACEUTICALS, INC.-2018-37985

PATIENT

DRUGS (1)
  1. EYLEA [Suspect]
     Active Substance: AFLIBERCEPT
     Indication: MACULAR DEGENERATION
     Dosage: 1 DF, UNK
     Route: 031
     Dates: start: 20140918, end: 20180904

REACTIONS (1)
  - Death [Fatal]

NARRATIVE: CASE EVENT DATE: 20180917
